FAERS Safety Report 5794977-X (Version None)
Quarter: 2008Q2

REPORT INFORMATION
  Report Type: 
  Country: None (occurrence: None)
  Receive Date: 20080627
  Receipt Date: 20080627
  Transmission Date: 20081010
  Serious: Yes (Life-Threatening, Other)
  Sender: FDA-Public Use
  Company Number: None

PATIENT
  Age: 47 Year
  Sex: Female
  Weight: 60.782 kg

DRUGS (1)
  1. LEVOTHYROXINE SODIUM [Suspect]
     Indication: THYROID HORMONE REPLACEMENT THERAPY
     Dosage: 150 MCG DAILY PO
     Route: 048
     Dates: start: 20071201, end: 20080615

REACTIONS (7)
  - ALOPECIA [None]
  - ATTENTION DEFICIT/HYPERACTIVITY DISORDER [None]
  - NAIL GROWTH ABNORMAL [None]
  - ONYCHOCLASIS [None]
  - POST PROCEDURAL COMPLICATION [None]
  - SKIN DISORDER [None]
  - TRICHORRHEXIS [None]
